FAERS Safety Report 10487379 (Version 1)
Quarter: 2014Q4

REPORT INFORMATION
  Report Type: Spontaneous
  Country: US (occurrence: US)
  Receive Date: 20141001
  Receipt Date: 20141001
  Transmission Date: 20150528
  Serious: No
  Sender: FDA-Public Use
  Company Number: US-BAYER-2014-144797

PATIENT
  Age: 76 Year
  Sex: Female
  Weight: 77.98 kg

DRUGS (5)
  1. ONE A DAY WOMEN^S 50+ HEALTHY ADVANTAGE [Concomitant]
     Active Substance: VITAMINS
     Dosage: UNK DF, UNK
  2. ALEVE PM [Suspect]
     Active Substance: DIPHENHYDRAMINE HYDROCHLORIDE\NAPROXEN SODIUM
     Indication: ARTHRITIS
     Dosage: 1 DF, ONCE
     Route: 048
     Dates: start: 20140921
  3. SUDAFED [Concomitant]
     Active Substance: PSEUDOEPHEDRINE HYDROCHLORIDE
  4. ALEVE [Suspect]
     Active Substance: NAPROXEN SODIUM
     Indication: ARTHRITIS
     Dosage: 1 DF, EVERY 12 HOURS
     Route: 048
     Dates: start: 2013
  5. CALCIUM [Concomitant]
     Active Substance: CALCIUM

REACTIONS (3)
  - Agitation [Recovered/Resolved]
  - Incorrect drug administration duration [Unknown]
  - Drug ineffective [Unknown]

NARRATIVE: CASE EVENT DATE: 2013
